FAERS Safety Report 6237744-5 (Version None)
Quarter: 2009Q2

REPORT INFORMATION
  Report Type: 
  Country: None (occurrence: None)
  Receive Date: 20090618
  Receipt Date: 20090609
  Transmission Date: 20091009
  Serious: Yes (Other)
  Sender: FDA-Public Use
  Company Number: CHPA2009US13358

PATIENT
  Age: 40 Year
  Sex: Female
  Weight: 127 kg

DRUGS (5)
  1. VOLTAREN [Suspect]
     Indication: ARTHRALGIA
     Dosage: NOT MEASURED, TOPICAL
     Route: 061
     Dates: start: 20080101, end: 20090601
  2. VOLTAREN [Suspect]
     Indication: BACK PAIN
     Dosage: NOT MEASURED, TOPICAL
     Route: 061
     Dates: start: 20080101, end: 20090601
  3. MOTRIN [Concomitant]
  4. OXYCODONE HCL [Concomitant]
  5. HYDROMORPHONE HCL [Concomitant]

REACTIONS (5)
  - APPLICATION SITE PAIN [None]
  - APPLICATION SITE SWELLING [None]
  - DRUG ADMINISTERED AT INAPPROPRIATE SITE [None]
  - GASTRIC OPERATION [None]
  - WRONG TECHNIQUE IN DRUG USAGE PROCESS [None]
